FAERS Safety Report 7163186 (Version 22)
Quarter: 2015Q4

REPORT INFORMATION
  Report Type: Report from Study
  Country: CA (occurrence: CA)
  Receive Date: 20091030
  Receipt Date: 20151222
  Transmission Date: 20160305
  Serious: Yes (Death, Hospitalization, Other)
  Sender: FDA-Public Use
  Company Number: PHHY2009CA41710

PATIENT
  Age: 75 Year
  Sex: Female

DRUGS (2)
  1. SANDOSTATIN LAR DEPOT [Suspect]
     Active Substance: OCTREOTIDE ACETATE
     Dosage: 20 MG, QMO (EVERY 4 WEEKS)
     Route: 030
  2. SANDOSTATIN LAR DEPOT [Suspect]
     Active Substance: OCTREOTIDE ACETATE
     Indication: METASTATIC CARCINOID TUMOUR
     Dosage: 30 MG, QMO (EVERY 4 WEEKS)
     Route: 030
     Dates: start: 20090825

REACTIONS (43)
  - Fall [Unknown]
  - Metastases to lymph nodes [Unknown]
  - Cough [Unknown]
  - Oral infection [Recovered/Resolved]
  - Injection site erythema [Unknown]
  - Asthenia [Not Recovered/Not Resolved]
  - Amnesia [Unknown]
  - Syncope [Recovered/Resolved]
  - Contusion [Unknown]
  - Malaise [Unknown]
  - Vomiting [Unknown]
  - Metastases to lung [Unknown]
  - Malignant neoplasm progression [Unknown]
  - Blood pressure systolic increased [Unknown]
  - Death [Fatal]
  - Spinal fracture [Unknown]
  - Metastases to abdominal cavity [Unknown]
  - Rhinitis [Recovered/Resolved]
  - Eye infection [Recovered/Resolved]
  - Flushing [Unknown]
  - Osteoporosis [Unknown]
  - Hot flush [Unknown]
  - Fatigue [Not Recovered/Not Resolved]
  - Sensory loss [Unknown]
  - Pneumonia [Unknown]
  - Ear infection [Recovered/Resolved]
  - Pharyngitis [Recovered/Resolved]
  - Neck mass [Recovered/Resolved]
  - Anxiety [Unknown]
  - Blood pressure decreased [Unknown]
  - Pain in extremity [Unknown]
  - Diarrhoea [Recovered/Resolved]
  - Injection site mass [Unknown]
  - Decreased appetite [Not Recovered/Not Resolved]
  - Haemoglobin decreased [Unknown]
  - Heart rate increased [Unknown]
  - Loss of consciousness [Unknown]
  - Tenderness [Recovered/Resolved]
  - Urine analysis abnormal [Unknown]
  - Neck pain [Unknown]
  - Nausea [Unknown]
  - Dizziness [Recovering/Resolving]
  - Abdominal discomfort [Unknown]

NARRATIVE: CASE EVENT DATE: 20091008
